FAERS Safety Report 7461581-7 (Version None)
Quarter: 2011Q2

REPORT INFORMATION
  Report Type: 
  Country: None (occurrence: None)
  Receive Date: 20110428
  Receipt Date: 20110413
  Transmission Date: 20111010
  Serious: Yes (Other)
  Sender: FDA-Public Use
  Company Number: 030182

PATIENT
  Sex: Male
  Weight: 90.7194 kg

DRUGS (5)
  1. CIMZIA [Suspect]
     Indication: CROHN'S DISEASE
     Dosage: (SUBCUTANEOUS)
     Route: 058
     Dates: start: 20100701, end: 20100909
  2. REMICADE [Suspect]
     Dosage: (5MG/KG)
     Dates: start: 20061001, end: 20100701
  3. OMEPRAZOLE [Concomitant]
  4. RESTASIS [Concomitant]
  5. METOPROLOL SUCCINATE [Concomitant]

REACTIONS (2)
  - LICHENOID KERATOSIS [None]
  - HYPERSENSITIVITY [None]
